FAERS Safety Report 9584347 (Version 1)
Quarter: 2013Q4

REPORT INFORMATION
  Report Type: Spontaneous
  Country: US (occurrence: US)
  Receive Date: 20131002
  Receipt Date: 20131002
  Transmission Date: 20140711
  Serious: No
  Sender: FDA-Public Use
  Company Number: US-AMGEN-USASP2013052462

PATIENT
  Age: 41 Year
  Sex: Female
  Weight: 88.44 kg

DRUGS (13)
  1. ENBREL [Suspect]
     Indication: PRODUCT USED FOR UNKNOWN INDICATION
     Dosage: 50 MG, QWK
     Route: 058
  2. AVALIDE [Concomitant]
     Dosage: 150-12.5
  3. PRILOSEC                           /00661201/ [Concomitant]
     Dosage: 40 MG, UNK
  4. PREDNISONE [Concomitant]
     Dosage: 1 MG, UNK
  5. ULTRAM                             /00599202/ [Concomitant]
     Dosage: 50 MG, UNK
  6. IBUPROFEN [Concomitant]
     Dosage: UNK
  7. FLONASE [Concomitant]
     Dosage: 0.05 %, UNK
  8. ZYRTEC [Concomitant]
     Dosage: 5 MG, UNK
  9. HUMIRA [Concomitant]
     Dosage: 40 MG/0.8
  10. SINGULAIR [Concomitant]
     Dosage: 5 MG, UNK
  11. MULTIVITAMINS, PLAIN [Concomitant]
     Dosage: UNK
  12. VITAMIN D                          /00107901/ [Concomitant]
     Dosage: 1000 UNIT, UNK
  13. FLEXERIL                           /00428402/ [Concomitant]
     Dosage: 10 MG, UNK

REACTIONS (1)
  - Drug ineffective [Unknown]
